FAERS Safety Report 9123132 (Version 1)
Quarter: 2013Q1

REPORT INFORMATION
  Report Type: Spontaneous
  Country: US (occurrence: None)
  Receive Date: 20130225
  Receipt Date: 20130225
  Transmission Date: 20140127
  Serious: No
  Sender: FDA-Public Use
  Company Number: None

PATIENT
  Age: 62 Year
  Sex: Female
  Weight: 78.02 kg

DRUGS (2)
  1. RITALIN [Suspect]
     Indication: SLEEP DISORDER
     Dosage: 1-TAB  BID  PO
     Route: 048
     Dates: start: 20130222, end: 20130223
  2. RITALIN [Suspect]
     Dosage: 1-TAB  BID  PO
     Route: 048
     Dates: start: 20130105, end: 20130113

REACTIONS (7)
  - Headache [None]
  - Agitation [None]
  - Abdominal discomfort [None]
  - Influenza like illness [None]
  - Toxicity to various agents [None]
  - Drug ineffective [None]
  - Product quality issue [None]
